FAERS Safety Report 9746035 (Version 2)
Quarter: 2014Q1

REPORT INFORMATION
  Report Type: Spontaneous
  Country: US (occurrence: US)
  Receive Date: 20131211
  Receipt Date: 20140103
  Transmission Date: 20141002
  Serious: No
  Sender: FDA-Public Use
  Company Number: US-009507513-1312USA005131

PATIENT
  Sex: Female
  Weight: 93.42 kg

DRUGS (6)
  1. OXYTROL FOR WOMEN [Suspect]
     Indication: HYPERTONIC BLADDER
     Dosage: 1 DF, Q4D
     Route: 062
     Dates: end: 201311
  2. TOPROL XL TABLETS [Concomitant]
     Indication: CORONARY ARTERY BYPASS
     Dosage: UNK, UNKNOWN
  3. PLAVIX [Concomitant]
     Indication: CORONARY ARTERY BYPASS
     Dosage: UNK, UNKNOWN
  4. ASPIRIN [Concomitant]
     Indication: PAIN
     Dosage: 81 MG, UNKNOWN
  5. ZANTAC [Concomitant]
     Indication: PRODUCT USED FOR UNKNOWN INDICATION
     Dosage: UNK, UNKNOWN
  6. NORVASC [Concomitant]
     Indication: HYPERTENSION
     Dosage: UNK, UNKNOWN

REACTIONS (3)
  - Urinary retention [Unknown]
  - Application site pruritus [Recovered/Resolved]
  - Rash papular [Recovered/Resolved]
